FAERS Safety Report 5733780-3 (Version None)
Quarter: 2008Q2

REPORT INFORMATION
  Report Type: 
  Country: None (occurrence: None)
  Receive Date: 20080509
  Receipt Date: 20080506
  Transmission Date: 20081010
  Serious: Yes (Other)
  Sender: FDA-Public Use
  Company Number: US-ABBOTT-08P-163-0450918-00

PATIENT

DRUGS (2)
  1. CYCLOSPORINE [Suspect]
     Indication: INFLAMMATORY BOWEL DISEASE
     Route: 042
  2. CYCLOSPORINE [Suspect]
     Dosage: NOT REPORTED

REACTIONS (2)
  - ANAPHYLACTIC REACTION [None]
  - INFUSION RELATED REACTION [None]
